FAERS Safety Report 19013462 (Version 1)
Quarter: 2021Q1

REPORT INFORMATION
  Report Type: Spontaneous
  Country: US (occurrence: US)
  Receive Date: 20210316
  Receipt Date: 20210316
  Transmission Date: 20210420
  Serious: Yes (Hospitalization)
  Sender: FDA-Public Use
  Company Number: None

PATIENT
  Age: 37 Year
  Sex: Female
  Weight: 258.75 kg

DRUGS (1)
  1. BAMLANIVIMAB. [Suspect]
     Active Substance: BAMLANIVIMAB
     Indication: COVID-19
     Dates: start: 20210316, end: 20210316

REACTIONS (5)
  - Hyperhidrosis [None]
  - Pallor [None]
  - Nausea [None]
  - Diarrhoea [None]
  - Infusion related reaction [None]

NARRATIVE: CASE EVENT DATE: 20210316
